FAERS Safety Report 9709222 (Version 1)
Quarter: 2013Q4

REPORT INFORMATION
  Report Type: Report from Study
  Country: US (occurrence: US)
  Receive Date: 20131125
  Receipt Date: 20131125
  Transmission Date: 20140711
  Serious: Yes (Other)
  Sender: FDA-Public Use
  Company Number: US-ABBVIE-13P-163-1171064-00

PATIENT
  Age: 55 Year
  Sex: 0

DRUGS (15)
  1. HUMIRA [Suspect]
     Indication: RHEUMATOID ARTHRITIS
     Route: 058
     Dates: start: 2007, end: 2008
  2. GABAPENTIN [Concomitant]
     Indication: NEUROPATHY PERIPHERAL
  3. AZATHIOPRINE [Concomitant]
     Indication: LUNG DISORDER
  4. PANTOPRAZOLE [Concomitant]
     Indication: GASTROOESOPHAGEAL REFLUX DISEASE
  5. PREDNISONE [Concomitant]
     Indication: INFLAMMATION
  6. MOBIC [Concomitant]
     Indication: INFLAMMATION
  7. SYNTHROID [Concomitant]
     Indication: HYPOTHYROIDISM
  8. ZOLPIDEM [Concomitant]
     Indication: INSOMNIA
     Dosage: AT HOUR OF SLEEP
  9. FLEXERIL [Concomitant]
     Indication: MUSCLE RELAXANT THERAPY
     Dosage: AT HOUR OF SLEEP
  10. LISINOPRIL/HCTZ [Concomitant]
     Indication: HYPERTENSION
     Dosage: 20/25 MG AT HOUR OF SLEEP
  11. CYMBALTA [Concomitant]
     Indication: DEPRESSION
     Dosage: AT HOUR OF SLEEP
  12. LORAZEPAM [Concomitant]
     Indication: ANXIETY
     Dosage: 3 TIMES A DAY
  13. ESTRADIOL [Concomitant]
     Indication: HORMONE REPLACEMENT THERAPY
  14. OXYCODONE [Concomitant]
     Indication: PRODUCT USED FOR UNKNOWN INDICATION
     Dosage: 7.5/500 MG Q6HR AS NEEDED
  15. MULTIPLE VITAMIN [Concomitant]
     Indication: PRODUCT USED FOR UNKNOWN INDICATION

REACTIONS (4)
  - Rotator cuff syndrome [Recovered/Resolved]
  - Fall [Unknown]
  - Arthralgia [Not Recovered/Not Resolved]
  - Joint swelling [Not Recovered/Not Resolved]
